FAERS Safety Report 7383987-7 (Version None)
Quarter: 2011Q1

REPORT INFORMATION
  Report Type: 
  Country: None (occurrence: None)
  Receive Date: 20110322
  Receipt Date: 20110309
  Transmission Date: 20110831
  Serious: Yes (Other)
  Sender: FDA-Public Use
  Company Number: 026549

PATIENT
  Sex: Female

DRUGS (2)
  1. CIMZIA [Suspect]
     Indication: CROHN'S DISEASE
     Dosage: 200 MG 1X2 WEEKS, 400 MG1X4 WEEKS, SUBCUTANEOUS
     Route: 058
     Dates: start: 20100809
  2. CIMZIA [Suspect]

REACTIONS (5)
  - ACTIVATED PARTIAL THROMBOPLASTIN TIME PROLONGED [None]
  - BRONCHITIS [None]
  - GASTROINTESTINAL HAEMORRHAGE [None]
  - URINARY TRACT INFECTION [None]
  - SYSTEMIC LUPUS ERYTHEMATOSUS [None]
